FAERS Safety Report 9833062 (Version 1)
Quarter: 2014Q1

REPORT INFORMATION
  Report Type: Spontaneous
  Country: IN (occurrence: IN)
  Receive Date: 20140121
  Receipt Date: 20140121
  Transmission Date: 20141002
  Serious: Yes (Other)
  Sender: FDA-Public Use
  Company Number: PHHY2014IN002690

PATIENT
  Age: 4 Year
  Sex: Male
  Weight: 14 kg

DRUGS (2)
  1. VALPROIC ACID [Suspect]
     Route: 064
  2. PHENOBARBITONE [Concomitant]
     Indication: PROPHYLAXIS

REACTIONS (19)
  - Foetal anticonvulsant syndrome [Unknown]
  - Iris coloboma [Unknown]
  - Choroidal coloboma [Unknown]
  - Retinal coloboma [Unknown]
  - Developmental delay [Unknown]
  - Dysmorphism [Unknown]
  - Speech disorder developmental [Recovering/Resolving]
  - Skull malformation [Unknown]
  - Hypotelorism of orbit [Unknown]
  - Anisometropia [Unknown]
  - Astigmatism [Unknown]
  - Lip disorder [Unknown]
  - Microstomia [Unknown]
  - High arched palate [Unknown]
  - Deformity [Unknown]
  - Road traffic accident [Unknown]
  - Lip injury [Unknown]
  - Extradural haematoma [Unknown]
  - Foetal exposure during pregnancy [Unknown]
